FAERS Safety Report 19702326 (Version 2)
Quarter: 2022Q1

REPORT INFORMATION
  Report Type: Report from Study
  Country: CL (occurrence: CL)
  Receive Date: 20210814
  Receipt Date: 20220319
  Transmission Date: 20220423
  Serious: Yes (Hospitalization)
  Sender: FDA-Public Use
  Company Number: CL-NOVARTISPH-NVSC2021CL102124

PATIENT
  Age: 38 Year
  Sex: Male

DRUGS (3)
  1. TASIGNA [Suspect]
     Active Substance: NILOTINIB
     Indication: Chronic myeloid leukaemia
     Dosage: 300 MG, BID (150 MG X 2 EVERY 12 HOURS, 4 DAILY)
     Route: 048
     Dates: start: 2020
  2. TASIGNA [Suspect]
     Active Substance: NILOTINIB
     Dosage: 300 MG, Q12H
     Route: 048
     Dates: start: 202009
  3. TASIGNA [Suspect]
     Active Substance: NILOTINIB
     Dosage: 300 MG, BID
     Route: 048
     Dates: start: 2020

REACTIONS (8)
  - Drug ineffective [Unknown]
  - Tracheal ulcer [Unknown]
  - Blast crisis in myelogenous leukaemia [Unknown]
  - Paternal exposure during pregnancy [Unknown]
  - Memory impairment [Unknown]
  - Gene mutation [Unknown]
  - Nasopharyngitis [Recovering/Resolving]
  - Pharyngitis [Unknown]

NARRATIVE: CASE EVENT DATE: 20210623
